FAERS Safety Report 8817373 (Version 2)
Quarter: 2012Q4

REPORT INFORMATION
  Report Type: 
  Country: US (occurrence: US)
  Receive Date: 20121004
  Receipt Date: 20121017
  Transmission Date: 20130627
  Serious: Yes (Death)
  Sender: FDA-Public Use
  Company Number: CHPA2012US020601

PATIENT
  Age: 84 Year
  Sex: Female

DRUGS (1)
  1. MYOFLEX ANALGESIC CREME [Suspect]
     Indication: ARTHRALGIA
     Dosage: UNK, PRN
     Route: 061
     Dates: start: 1979, end: 2008

REACTIONS (2)
  - Cardiac failure congestive [Fatal]
  - Cardiac disorder [Fatal]
